FAERS Safety Report 21632439 (Version 1)
Quarter: 2022Q4

REPORT INFORMATION
  Report Type: Report from Study
  Country: US (occurrence: US)
  Receive Date: 20221123
  Receipt Date: 20221123
  Transmission Date: 20230113
  Serious: No
  Sender: FDA-Public Use
  Company Number: US-ABBVIE-22K-163-4467988-00

PATIENT
  Sex: Female

DRUGS (4)
  1. HUMIRA [Suspect]
     Active Substance: ADALIMUMAB
     Indication: Hidradenitis
     Dosage: DAY 1 - 2PEN
     Route: 058
     Dates: start: 20211108, end: 20211108
  2. HUMIRA [Suspect]
     Active Substance: ADALIMUMAB
     Dosage: DAY 15 - 1 PEN
     Route: 058
     Dates: start: 20211123, end: 20211123
  3. HUMIRA [Suspect]
     Active Substance: ADALIMUMAB
     Route: 058
     Dates: start: 20211207
  4. HUMIRA [Suspect]
     Active Substance: ADALIMUMAB
     Route: 058

REACTIONS (5)
  - Sinus congestion [Not Recovered/Not Resolved]
  - Hypersensitivity [Unknown]
  - Self-consciousness [Unknown]
  - Urinary tract infection [Not Recovered/Not Resolved]
  - Impaired self-care [Unknown]

NARRATIVE: CASE EVENT DATE: 20220101
